FAERS Safety Report 9712459 (Version 1)
Quarter: 2013Q4

REPORT INFORMATION
  Report Type: Spontaneous
  Country: US (occurrence: US)
  Receive Date: 20131126
  Receipt Date: 20131126
  Transmission Date: 20140711
  Serious: No
  Sender: FDA-Public Use
  Company Number: US-BRISTOL-MYERS SQUIBB COMPANY-19178631

PATIENT
  Age: 57 Year
  Sex: Female
  Weight: 89.34 kg

DRUGS (7)
  1. BYDUREON [Suspect]
  2. COUMADIN [Concomitant]
  3. ALTACE [Concomitant]
  4. LEXAPRO [Concomitant]
  5. VYTORIN [Concomitant]
  6. FOLIC ACID [Concomitant]
  7. JANUMET [Concomitant]

REACTIONS (2)
  - Injection site nodule [Not Recovered/Not Resolved]
  - Injection site bruising [Not Recovered/Not Resolved]
